FAERS Safety Report 6083144-0 (Version None)
Quarter: 2009Q1

REPORT INFORMATION
  Report Type: 
  Country: None (occurrence: None)
  Receive Date: 20090213
  Receipt Date: 20090213
  Transmission Date: 20090719
  Serious: Yes (Life-Threatening, Other)
  Sender: FDA-Public Use
  Company Number: None

PATIENT
  Age: 31 Year
  Sex: Female
  Weight: 85.7298 kg

DRUGS (2)
  1. FASTIN [Suspect]
     Indication: WEIGHT CONTROL
     Dosage: ORAL
     Route: 048
     Dates: start: 19800401
  2. FASTIN [Suspect]
     Indication: WEIGHT CONTROL
     Dosage: ORAL
     Route: 048
     Dates: start: 19811201

REACTIONS (7)
  - ARRHYTHMIA [None]
  - BLOOD PRESSURE IMMEASURABLE [None]
  - CARDIAC FIBRILLATION [None]
  - CARDIAC FLUTTER [None]
  - DYSPNOEA [None]
  - FATIGUE [None]
  - OEDEMA PERIPHERAL [None]
